FAERS Safety Report 6183655-3 (Version None)
Quarter: 2009Q2

REPORT INFORMATION
  Report Type: 
  Country: None (occurrence: None)
  Receive Date: 20090508
  Receipt Date: 20090428
  Transmission Date: 20091009
  Serious: Yes (Hospitalization)
  Sender: FDA-Public Use
  Company Number: FR-B.I. PHARMACEUTICALS,INC./RIDGEFIELD-2009-FF-00296FF

PATIENT
  Sex: Male

DRUGS (7)
  1. JOSIR [Suspect]
     Indication: BENIGN PROSTATIC HYPERPLASIA
     Dosage: .4MG
     Route: 048
     Dates: end: 20090401
  2. MONONAXY [Concomitant]
     Indication: DYSPNOEA
     Route: 048
     Dates: start: 20090310, end: 20090320
  3. MONONAXY [Concomitant]
     Indication: COUGH
  4. BRONCHOKOD [Concomitant]
     Indication: DYSPNOEA
     Route: 048
     Dates: start: 20090310, end: 20090315
  5. BRONCHOKOD [Concomitant]
     Indication: COUGH
  6. NEO CODION [Concomitant]
     Indication: DYSPNOEA
     Route: 048
     Dates: start: 20090310, end: 20090315
  7. NEO CODION [Concomitant]
     Indication: COUGH

REACTIONS (1)
  - AGRANULOCYTOSIS [None]
